FAERS Safety Report 6744128-X (Version None)
Quarter: 2010Q2

REPORT INFORMATION
  Report Type: 
  Country: None (occurrence: None)
  Receive Date: 20100527
  Receipt Date: 20100521
  Transmission Date: 20101027
  Serious: Yes (Congenital Anomaly)
  Sender: FDA-Public Use
  Company Number: B0653300A

PATIENT

DRUGS (5)
  1. PAXIL [Suspect]
     Indication: DRUG USE FOR UNKNOWN INDICATION
     Dosage: 20MG PER DAY
     Dates: start: 20090318, end: 20090413
  2. PAXIL [Suspect]
     Dosage: 10MG PER DAY
     Dates: start: 20090414, end: 20090727
  3. LORAZEPAM [Concomitant]
     Indication: DRUG USE FOR UNKNOWN INDICATION
     Dosage: 1MG PER DAY
     Dates: start: 20090318, end: 20090727
  4. TALION [Concomitant]
     Dosage: 20MG PER DAY
     Dates: end: 20090727
  5. TAVEGYL [Concomitant]
     Indication: ASTHMA
     Dosage: 1MG PER DAY
     Dates: end: 20090727

REACTIONS (2)
  - CRYPTOPHTHALMOS [None]
  - DRUG EXPOSURE DURING PREGNANCY [None]
